FAERS Safety Report 10242326 (Version 2)
Quarter: 2014Q2

REPORT INFORMATION
  Report Type: Spontaneous
  Country: FR (occurrence: FR)
  Receive Date: 20140617
  Receipt Date: 20140627
  Transmission Date: 20141212
  Serious: Yes (Hospitalization, Other)
  Sender: FDA-Public Use
  Company Number: FR-PFIZER INC-2014162315

PATIENT
  Age: 51 Year
  Sex: Female

DRUGS (13)
  1. AMLOR [Suspect]
     Indication: HYPERTENSION
     Dosage: 10 MG, 1X/DAY
     Route: 048
     Dates: end: 20140526
  2. OMEPRAZOLE [Suspect]
     Indication: GASTROOESOPHAGEAL REFLUX DISEASE
     Dosage: 20 MG, 1X/DAY
     Route: 048
     Dates: end: 20140526
  3. DEPAKOTE [Suspect]
     Dosage: 1500 MG, DAILY (1 DF IN THE MORNING AND 2 DF IN THE EVENING)
     Route: 048
  4. CORTANCYL [Concomitant]
     Dosage: 40 MG, 1X/DAY
  5. SPECIAFOLDINE [Concomitant]
     Dosage: 5 MG, 1X/DAY
     Dates: end: 20140526
  6. TARDYFERON [Concomitant]
     Dosage: 1 DF, 1X/DAY
     Dates: end: 20140526
  7. UVEDOSE [Concomitant]
     Dosage: 100 000 IU
     Dates: end: 20140524
  8. SERESTA [Concomitant]
     Dosage: 3 DF, DAILY
     Dates: end: 20140526
  9. CODOLIPRANE [Concomitant]
     Dosage: 2 DF, 2X/DAY
  10. VOGALEN [Concomitant]
     Indication: NAUSEA
     Dosage: 10 MG, 1X/DAY
     Dates: end: 20140524
  11. MOTILIUM [Concomitant]
     Dosage: 1 TO 2 DF DAILY
  12. APROVEL [Concomitant]
     Dosage: 150 MG, UNK
  13. SPASFON [Concomitant]
     Dosage: UNK
     Dates: end: 20140526

REACTIONS (2)
  - Pancreatitis acute [Recovering/Resolving]
  - Renal failure acute [Unknown]
